FAERS Safety Report 5809782-5 (Version None)
Quarter: 2008Q3

REPORT INFORMATION
  Report Type: 
  Country: None (occurrence: None)
  Receive Date: 20080715
  Receipt Date: 20080709
  Transmission Date: 20090109
  Serious: Yes (Hospitalization)
  Sender: FDA-Public Use
  Company Number: US-AVENTIS-200810299US

PATIENT
  Sex: Female

DRUGS (3)
  1. APIDRA [Suspect]
     Indication: TYPE 1 DIABETES MELLITUS
     Dosage: DOSE: BASAL RATE 0.96 3-6AM, 0.9 OTHER TIMES
     Dates: start: 20070901
  2. APIDRA [Suspect]
     Dosage: DOSE: BASAL RATE 21.75-27 UNITS/DAY AND MEAL TIME BOLUS OF 5-12 UNITS
     Dates: end: 20080101
  3. PRENATAL VITAMINS                  /01549301/ [Concomitant]
     Dosage: DOSE: 27MG - 0.3MG TAB, 1TAB

REACTIONS (31)
  - ABDOMINAL PAIN [None]
  - ABDOMINAL TENDERNESS [None]
  - ANION GAP INCREASED [None]
  - ASTHENIA [None]
  - BACK PAIN [None]
  - BACTERIURIA [None]
  - BLOOD BICARBONATE DECREASED [None]
  - BLOOD GASES ABNORMAL [None]
  - BLOOD GLUCOSE INCREASED [None]
  - BLOOD KETONE BODY INCREASED [None]
  - BLOOD PH DECREASED [None]
  - BLOOD PRESSURE INCREASED [None]
  - BODY TEMPERATURE INCREASED [None]
  - CARBON DIOXIDE DECREASED [None]
  - DIABETIC KETOACIDOSIS [None]
  - DRUG INEFFECTIVE [None]
  - ELECTROCARDIOGRAM ST SEGMENT DEPRESSION [None]
  - GASTROINTESTINAL SOUNDS ABNORMAL [None]
  - HEADACHE [None]
  - KIDNEY INFECTION [None]
  - LABORATORY TEST ABNORMAL [None]
  - NAUSEA [None]
  - PCO2 DECREASED [None]
  - PHARMACEUTICAL PRODUCT COMPLAINT [None]
  - POLLAKIURIA [None]
  - PROTEIN URINE PRESENT [None]
  - RED BLOOD CELLS URINE POSITIVE [None]
  - SINUS TACHYCARDIA [None]
  - VOMITING [None]
  - WHITE BLOOD CELL COUNT INCREASED [None]
  - WHITE BLOOD CELLS URINE POSITIVE [None]
